FAERS Safety Report 18219844 (Version 2)
Quarter: 2020Q4

REPORT INFORMATION
  Report Type: Spontaneous
  Country: ES (occurrence: ES)
  Receive Date: 20200901
  Receipt Date: 20201102
  Transmission Date: 20210113
  Serious: No
  Sender: FDA-Public Use
  Company Number: ES-BEH-2020121789

PATIENT
  Age: 76 Year
  Sex: Female

DRUGS (2)
  1. RESPREEZA [Suspect]
     Active Substance: .ALPHA.1-PROTEINASE INHIBITOR HUMAN
     Indication: ALPHA-1 ANTITRYPSIN DEFICIENCY
     Dosage: 10 GRAM, QOW
     Route: 042
     Dates: start: 20200710, end: 20200805
  2. RESPREEZA [Suspect]
     Active Substance: .ALPHA.1-PROTEINASE INHIBITOR HUMAN
     Indication: ALPHA-1 ANTITRYPSIN DEFICIENCY
     Dosage: 10 GRAM, QOW
     Route: 042
     Dates: start: 20200710, end: 20200805

REACTIONS (1)
  - Pancreatic carcinoma [Fatal]
